FAERS Safety Report 16470410 (Version 1)
Quarter: 2019Q2

REPORT INFORMATION
  Report Type: Spontaneous
  Country: BR (occurrence: BR)
  Receive Date: 20190624
  Receipt Date: 20190624
  Transmission Date: 20190711
  Serious: Yes (Other)
  Sender: FDA-Public Use
  Company Number: BR-JNJFOC-20190618436

PATIENT
  Sex: Female

DRUGS (4)
  1. XARELTO [Suspect]
     Active Substance: RIVAROXABAN
     Indication: THROMBOSIS
     Dosage: 20 MG, BID
     Route: 048
     Dates: start: 20190515
  2. XARELTO [Suspect]
     Active Substance: RIVAROXABAN
     Dosage: 20 MG, QD
     Route: 048
     Dates: start: 201906, end: 20190610
  3. PRESSAT [Concomitant]
     Active Substance: AMLODIPINE BESYLATE
     Route: 065
  4. ABLOK PLUS [Concomitant]
     Active Substance: ATENOLOL\CHLORTHALIDONE
     Route: 065

REACTIONS (3)
  - Accidental overdose [Unknown]
  - Angina pectoris [Unknown]
  - Dyspnoea [Unknown]
